FAERS Safety Report 24851079 (Version 2)
Quarter: 2025Q4

REPORT INFORMATION
  Report Type: Report from Study
  Country: CA (occurrence: CA)
  Receive Date: 20250116
  Receipt Date: 20251218
  Transmission Date: 20260117
  Serious: Yes (Other)
  Sender: TAKEDA
  Company Number: CA-TAKEDA-2024TUS126414

PATIENT
  Age: 58 Year
  Sex: Female
  Weight: 75 kg

DRUGS (3)
  1. VEDOLIZUMAB [Suspect]
     Active Substance: VEDOLIZUMAB
     Indication: Crohn^s disease
     Dosage: 300 MILLIGRAM
  2. VEDOLIZUMAB [Suspect]
     Active Substance: VEDOLIZUMAB
     Dosage: 300 MILLIGRAM
  3. HUMIRA [Concomitant]
     Active Substance: ADALIMUMAB
     Dosage: UNK

REACTIONS (15)
  - Leukaemia [Unknown]
  - Blindness transient [Unknown]
  - Pneumonia [Unknown]
  - Malaise [Unknown]
  - Diarrhoea [Unknown]
  - Frequent bowel movements [Unknown]
  - Ulcer [Unknown]
  - Stomatitis [Unknown]
  - Abdominal discomfort [Unknown]
  - Defaecation urgency [Unknown]
  - Hernia [Unknown]
  - Abdominal pain [Unknown]
  - Arthralgia [Unknown]
  - Constipation [Unknown]
  - Dyspepsia [Unknown]
